FAERS Safety Report 4834588-3 (Version None)
Quarter: 2005Q4

REPORT INFORMATION
  Report Type: 
  Country: None (occurrence: None)
  Receive Date: 20051122
  Receipt Date: 20050427
  Transmission Date: 20060501
  Serious: No
  Sender: FDA-Public Use
  Company Number: US-BRISTOL-MYERS SQUIBB COMPANY-12948063

PATIENT
  Age: 76 Year
  Sex: Female
  Weight: 73 kg

DRUGS (5)
  1. PRAVACHOL [Suspect]
     Indication: BLOOD CHOLESTEROL INCREASED
     Dosage: INITIALLY STARTED ON 20 MG INCREASED TO 40 MG
     Dates: start: 20030601
  2. HYZAAR [Concomitant]
  3. NEURONTIN [Concomitant]
  4. ASPIRIN [Concomitant]
  5. DARVOCET [Concomitant]

REACTIONS (6)
  - CHROMATURIA [None]
  - LIVER DISORDER [None]
  - PAIN [None]
  - RENAL DISORDER [None]
  - URINE ODOUR ABNORMAL [None]
  - VISION BLURRED [None]
